FAERS Safety Report 18809626 (Version 4)
Quarter: 2022Q2

REPORT INFORMATION
  Report Type: Report from Study
  Country: DE (occurrence: DE)
  Receive Date: 20210129
  Receipt Date: 20220506
  Transmission Date: 20220720
  Serious: Yes (Other)
  Sender: FDA-Public Use
  Company Number: DE-EMA-DD-20210115-KUMARSINGH_A-120039

PATIENT
  Age: 71 Year
  Sex: Female
  Weight: 82 kg

DRUGS (17)
  1. LETROZOLE [Suspect]
     Active Substance: LETROZOLE
     Indication: Breast cancer metastatic
     Dosage: 2.5 MILLIGRAM DAILY; 2.5 MG, QD (STOP DATE: 31 JUL 2019)
     Route: 048
     Dates: start: 20180817
  2. IBRANCE [Suspect]
     Active Substance: PALBOCICLIB
     Indication: Breast cancer metastatic
     Dosage: 125 MG ( ADMINISTRATION SCHEME 21 DAYS INTAKE, 7 DAYS PAUSE):UNIT DOSE:125MILLIGRAM
     Route: 048
     Dates: start: 20190801, end: 20200225
  3. IBRANCE [Suspect]
     Active Substance: PALBOCICLIB
     Dosage: 125 MG ( ADMINISTRATION SCHEME 21 DAYS INTAKE, 7 DAYS PAUSE)
     Route: 048
     Dates: start: 20200311
  4. KISQALI [Suspect]
     Active Substance: RIBOCICLIB
     Indication: Breast cancer metastatic
     Dosage: 400 MG, QD (21 DAYS INTAKE, 7 DAYS PAUSE)
     Route: 048
     Dates: start: 20190425, end: 20190604
  5. KISQALI [Suspect]
     Active Substance: RIBOCICLIB
     Dosage: 600 MG ( SCHEME 21 DAYS INTAKE, 7 DAYS PAUSE)
     Route: 048
     Dates: start: 20180831, end: 20180916
  6. KISQALI [Suspect]
     Active Substance: RIBOCICLIB
     Dosage: 600 MG, QD (21 DAYS INTAKE, 7 DAYS PAUSE)
     Route: 048
     Dates: start: 20181018, end: 20181030
  7. KISQALI [Suspect]
     Active Substance: RIBOCICLIB
     Dosage: 400 MG, QD (21 DAYS INTAKE, 7 DAYS PAUSE)
     Route: 048
     Dates: start: 20190313, end: 20190408
  8. KISQALI [Suspect]
     Active Substance: RIBOCICLIB
     Dosage: 200 MG, QD (21 DAYS INTAKE, 7 DAYS PAUSE) , THERAPY END DATE : ASKU
     Route: 048
     Dates: start: 20190731
  9. KISQALI [Suspect]
     Active Substance: RIBOCICLIB
     Dosage: 600 MG, QD (21 DAYS INTAKE, 7 DAYS PAUSE)
     Route: 048
     Dates: start: 20181107, end: 20190222
  10. KISQALI [Suspect]
     Active Substance: RIBOCICLIB
     Dosage: 200 MG, QD (21 DAYS INTAKE, 7 DAYS PAUSE)
     Route: 048
     Dates: start: 20190620, end: 20190731
  11. KISQALI [Suspect]
     Active Substance: RIBOCICLIB
     Dosage: 600 MILLIGRAM DAILY; THERAPY START DATE AND END DATE : ASKU
     Route: 048
  12. KISQALI [Suspect]
     Active Substance: RIBOCICLIB
     Dosage: 600 MILLIGRAM DAILY; THERAPY END DATE : ASKU
     Route: 048
     Dates: start: 20181031
  13. KISQALI [Suspect]
     Active Substance: RIBOCICLIB
     Dosage: 2.5 MILLIGRAM DAILY; 2.5 MG,QD , DURATION : 349 DAYS
     Route: 048
     Dates: start: 20180817, end: 20190731
  14. DENOSUMAB [Suspect]
     Active Substance: DENOSUMAB
     Indication: Product used for unknown indication
     Dosage: UNKTHERAPY START DATE:ASKED BUT UNKNOWNTHERAPY END DATE :ASKED BUT UNKNOWN
     Route: 065
  15. SPIRIVA [Concomitant]
     Active Substance: TIOTROPIUM BROMIDE MONOHYDRATE
     Indication: Product used for unknown indication
     Dosage: 1 DOSAGE FORMS DAILY; 1 DF, QD
     Route: 055
  16. FOSTER [Concomitant]
     Active Substance: BECLOMETHASONE\FORMOTEROL
     Indication: Product used for unknown indication
     Dosage: 2 DOSAGE FORMS DAILY; UNK, BID (1-0-1)
     Route: 055
  17. ALBUTEROL [Concomitant]
     Active Substance: ALBUTEROL
     Indication: Product used for unknown indication
     Dosage: 1-2 PUFFS, PRN
     Route: 055

REACTIONS (32)
  - Diverticulitis [Recovered/Resolved]
  - Hypokalaemia [Recovered/Resolved]
  - Neutropenia [Recovered/Resolved]
  - Electrocardiogram QT prolonged [Not Recovered/Not Resolved]
  - Electrocardiogram QT prolonged [Recovered/Resolved]
  - Electrocardiogram QT prolonged [Recovered/Resolved]
  - Nausea [Recovered/Resolved]
  - Intervertebral disc protrusion [Not Recovered/Not Resolved]
  - Diarrhoea [Not Recovered/Not Resolved]
  - Dyspnoea exertional [Not Recovered/Not Resolved]
  - Hypocalcaemia [Recovered/Resolved]
  - Oedema peripheral [Not Recovered/Not Resolved]
  - Blood creatinine increased [Not Recovered/Not Resolved]
  - Depression [Unknown]
  - Pruritus [Not Recovered/Not Resolved]
  - Depressed mood [Unknown]
  - Fatigue [Not Recovered/Not Resolved]
  - Viral infection [Recovered/Resolved]
  - Lymphopenia [Recovered/Resolved]
  - Radiculopathy [Not Recovered/Not Resolved]
  - Bronchitis [Recovered/Resolved]
  - Viral infection [Recovered/Resolved]
  - Urinary tract infection [Recovered/Resolved]
  - Blood calcium increased [Unknown]
  - Vomiting [Not Recovered/Not Resolved]
  - Dizziness [Unknown]
  - Anaemia [Not Recovered/Not Resolved]
  - Urinary tract infection [Recovered/Resolved]
  - Osteonecrosis of jaw [Recovering/Resolving]
  - Neutropenia [Recovered/Resolved]
  - COVID-19 [Not Recovered/Not Resolved]
  - Neutropenia [Recovering/Resolving]

NARRATIVE: CASE EVENT DATE: 20180917
